FAERS Safety Report 8546003-7 (Version None)
Quarter: 2012Q3

REPORT INFORMATION
  Report Type: 
  Country: None (occurrence: None)
  Receive Date: 20120727
  Receipt Date: 20111129
  Transmission Date: 20120928
  Serious: No
  Sender: FDA-Public Use
  Company Number: US-ASTRAZENECA-2011SE72844

PATIENT
  Sex: Male

DRUGS (3)
  1. WELLBUTRIN [Concomitant]
  2. LITHIUM CARBONATE [Concomitant]
  3. SEROQUEL [Suspect]
     Indication: BIPOLAR DISORDER
     Route: 048

REACTIONS (5)
  - ABNORMAL BEHAVIOUR [None]
  - AGGRESSION [None]
  - ANXIETY [None]
  - FEELING ABNORMAL [None]
  - DRUG DOSE OMISSION [None]
